FAERS Safety Report 22398469 (Version 1)
Quarter: 2023Q2

REPORT INFORMATION
  Report Type: Spontaneous
  Country: JP (occurrence: JP)
  Receive Date: 20230602
  Receipt Date: 20230602
  Transmission Date: 20230721
  Serious: Yes (Hospitalization)
  Sender: FDA-Public Use
  Company Number: JP-STRIDES ARCOLAB LIMITED-2023SP008077

PATIENT
  Age: 52 Year
  Sex: Female

DRUGS (6)
  1. LORAZEPAM [Suspect]
     Active Substance: LORAZEPAM
     Indication: Depression
     Dosage: UNK
     Route: 065
  2. DIAZEPAM [Suspect]
     Active Substance: DIAZEPAM
     Indication: Depression
     Dosage: UNK
     Route: 065
  3. METFORMIN\VILDAGLIPTIN [Suspect]
     Active Substance: METFORMIN\VILDAGLIPTIN
     Indication: Type 2 diabetes mellitus
     Dosage: UNK (2 TABLETS; VILDAGLIPTIN/METFORMIN HYDROCHLORIDE DAILY, 100MG/1000MG)
     Route: 048
  4. METFORMIN\VILDAGLIPTIN [Suspect]
     Active Substance: METFORMIN\VILDAGLIPTIN
     Dosage: UNK (50 TABLETS OF VILDAGLIPTIN; METFORMIN EQUALS 25,000 MG METFORMIN; 2500MG VILDAGLIPTIN)
     Route: 048
  5. BENIDIPINE HYDROCHLORIDE [Suspect]
     Active Substance: BENIDIPINE HYDROCHLORIDE
     Indication: Depression
     Dosage: UNK
     Route: 065
  6. SALINE [Suspect]
     Active Substance: SODIUM CHLORIDE
     Indication: Lactic acidosis
     Dosage: UNK
     Route: 065

REACTIONS (2)
  - Pneumonia aspiration [Unknown]
  - Off label use [Unknown]
